FAERS Safety Report 6832081-X (Version None)
Quarter: 2010Q3

REPORT INFORMATION
  Report Type: 
  Country: None (occurrence: None)
  Receive Date: 20100712
  Receipt Date: 20100705
  Transmission Date: 20110219
  Serious: Yes (Hospitalization)
  Sender: FDA-Public Use
  Company Number: FR-ROCHE-713741

PATIENT
  Sex: Female
  Weight: 70 kg

DRUGS (3)
  1. PEGINTERFERON ALFA-2A [Suspect]
     Indication: HEPATITIS C
     Route: 058
     Dates: start: 20100111
  2. RIBAVIRIN [Suspect]
     Indication: HEPATITIS C
     Route: 048
     Dates: start: 20100111
  3. BLINDED TMC435 [Suspect]
     Indication: HEPATITIS C
     Dosage: DRUG INTERRUPTED, DOSE:BLINDED, 2 CAPS, FREQUENCY:OD
     Route: 048
     Dates: start: 20100111

REACTIONS (4)
  - CHEST PAIN [None]
  - NEUTROPENIA [None]
  - PYREXIA [None]
  - SYNCOPE [None]
